FAERS Safety Report 11356743 (Version 1)
Quarter: 2015Q3

REPORT INFORMATION
  Report Type: Spontaneous
  Country: US (occurrence: US)
  Receive Date: 20150803
  Receipt Date: 20150803
  Transmission Date: 20151125
  Serious: No
  Sender: FDA-Public Use
  Company Number: US-ELI_LILLY_AND_COMPANY-US201210008820

PATIENT
  Age: 33 Year
  Sex: Male

DRUGS (8)
  1. STRATTERA [Suspect]
     Active Substance: ATOMOXETINE HYDROCHLORIDE
     Dosage: 60 MG, QD
  2. PROTEINS NOS [Concomitant]
  3. STRATTERA [Suspect]
     Active Substance: ATOMOXETINE HYDROCHLORIDE
     Dosage: 40 MG, UNK
     Dates: start: 201209
  4. LEUCINE [Concomitant]
     Active Substance: LEUCINE
  5. ISOLEUCINE [Concomitant]
     Active Substance: ISOLEUCINE
  6. GLUTAMINE [Concomitant]
     Active Substance: GLUTAMINE
  7. STRATTERA [Suspect]
     Active Substance: ATOMOXETINE HYDROCHLORIDE
     Indication: ATTENTION DEFICIT/HYPERACTIVITY DISORDER
     Dosage: 25 MG, QD
     Dates: start: 2010
  8. VALINE [Concomitant]
     Active Substance: VALINE

REACTIONS (5)
  - Malaise [Unknown]
  - Depressed mood [Unknown]
  - Drug effect incomplete [Unknown]
  - Nausea [Unknown]
  - Intentional product misuse [Unknown]
